FAERS Safety Report 15877502 (Version 1)
Quarter: 2019Q1

REPORT INFORMATION
  Report Type: Spontaneous
  Country: FR (occurrence: FR)
  Receive Date: 20190128
  Receipt Date: 20190128
  Transmission Date: 20190417
  Serious: Yes (Other)
  Sender: FDA-Public Use
  Company Number: FR-TEVA-2019-FR-1003577

PATIENT
  Age: 77 Year
  Sex: Female

DRUGS (2)
  1. HEMIGOXINE NATIVELLE 0,125 MG, COMPRIM? [Suspect]
     Active Substance: DIGOXIN
     Indication: RHEUMATIC HEART DISEASE
     Dosage: .13 MILLIGRAM DAILY;
     Route: 048
     Dates: start: 201808, end: 20181008
  2. BISOPROLOL (HEMIFUMARATE DE) [Suspect]
     Active Substance: BISOPROLOL FUMARATE
     Indication: RHEUMATIC HEART DISEASE
     Dosage: 2.5 MILLIGRAM DAILY;
     Route: 048
     Dates: start: 201808, end: 20181008

REACTIONS (2)
  - Rash pruritic [Recovered/Resolved]
  - Eosinophilia [Recovered/Resolved]

NARRATIVE: CASE EVENT DATE: 201809
